FAERS Safety Report 25621771 (Version 4)
Quarter: 2025Q4

REPORT INFORMATION
  Report Type: Spontaneous
  Country: CA (occurrence: CA)
  Receive Date: 20250730
  Receipt Date: 20251002
  Transmission Date: 20260117
  Serious: Yes (Other)
  Sender: CELLTRION
  Company Number: CA-PFIZER INC-202500129347

PATIENT

DRUGS (9)
  1. INFLECTRA [Suspect]
     Active Substance: INFLIXIMAB-DYYB
     Indication: Uveitis
     Dosage: 300 MG, EVERY 6 WEEKS
     Route: 042
     Dates: start: 20250530
  2. INFLECTRA [Suspect]
     Active Substance: INFLIXIMAB-DYYB
     Dosage: 300 MG, AFTER 8 WEEKS AND 4 DAYS (PRESCRIBED EVERY 6 WEEKS)
     Route: 042
     Dates: start: 20250729
  3. INFLECTRA [Suspect]
     Active Substance: INFLIXIMAB-DYYB
     Dosage: 300 MG, EVERY 6 WEEKS
     Route: 042
     Dates: start: 20250911
  4. ALCON [Concomitant]
     Dosage: 4 DROP (IN LEFT EYE)
     Route: 047
  5. CELLCEPT [Concomitant]
     Active Substance: MYCOPHENOLATE MOFETIL
     Dosage: 2.5 ML, 2X/DAY
  6. COMBIGAN [Concomitant]
     Active Substance: BRIMONIDINE TARTRATE\TIMOLOL MALEATE
     Dosage: 2 DROP (IN RIGHT EYE)
     Route: 047
  7. HUMIRA [Concomitant]
     Active Substance: ADALIMUMAB
     Dosage: 40 MG, WEEKLY
     Dates: start: 2016
  8. PRED FORTE [Concomitant]
     Active Substance: PREDNISOLONE ACETATE
     Dosage: 4 DROP (IN RIGHT EYE)
     Route: 047
  9. PROLENSA [Concomitant]
     Active Substance: BROMFENAC SODIUM
     Dosage: 4 DROP (2 DROPS IN RIGHT AND LEFT EYE)
     Route: 047

REACTIONS (3)
  - Drainage [Unknown]
  - Weight decreased [Unknown]
  - Fatigue [Unknown]

NARRATIVE: CASE EVENT DATE: 20250101
